FAERS Safety Report 12479721 (Version 2)
Quarter: 2017Q3

REPORT INFORMATION
  Report Type: Spontaneous
  Country: US (occurrence: US)
  Receive Date: 20160620
  Receipt Date: 20170926
  Transmission Date: 20171127
  Serious: No
  Sender: FDA-Public Use
  Company Number: US-PFIZER INC-2016277311

PATIENT
  Age: 61 Year
  Sex: Female
  Weight: 68.4 kg

DRUGS (20)
  1. COUMADIN [Concomitant]
     Active Substance: WARFARIN SODIUM
     Dosage: 3 MG, UNK
     Route: 048
  2. XGEVA [Concomitant]
     Active Substance: DENOSUMAB
     Dosage: 120 MG, UNK (ONCE)
     Route: 058
     Dates: start: 20120605
  3. IBRANCE [Suspect]
     Active Substance: PALBOCICLIB
     Indication: BREAST CANCER METASTATIC
     Dosage: 125 MG, DAILY
     Route: 048
     Dates: start: 20160216
  4. IBRANCE [Suspect]
     Active Substance: PALBOCICLIB
     Dosage: 125 MG, CYCLIC, (ONE A DAY FOR 3 WEEKS, THEN OFF FOR 1 WEEK)
     Dates: start: 201603
  5. COUMADIN [Concomitant]
     Active Substance: WARFARIN SODIUM
     Indication: ATRIAL FIBRILLATION
     Dosage: 2.5 MG, UNK
     Route: 048
     Dates: start: 20151207
  6. FASLODEX [Concomitant]
     Active Substance: FULVESTRANT
     Dosage: UNK, CYCLIC, (2 SHOTS EVERY 4 WEEKS)
  7. WARFARIN SODIUM. [Concomitant]
     Active Substance: WARFARIN SODIUM
     Indication: ATRIAL FIBRILLATION
     Dosage: 5 MG, DAILY
     Route: 048
     Dates: start: 20160215
  8. COUMADIN [Concomitant]
     Active Substance: WARFARIN SODIUM
     Dosage: 1 MG, DAILY
     Route: 048
  9. ACETAMINOPHEN W/HYDROCODONE [Concomitant]
     Active Substance: ACETAMINOPHEN\HYDROCODONE
     Dosage: 1 DF, AS NEEDED BID (HYDROCODONE 5MG, PARACETAMOL 325 MG)
     Route: 048
     Dates: start: 20160418
  10. FASLODEX [Concomitant]
     Active Substance: FULVESTRANT
     Dosage: 500 MG, DAILY (FOR 1 DAY, EVERY 28 DAYS)
     Route: 030
     Dates: start: 20160222
  11. SPIRONOLACTONE. [Concomitant]
     Active Substance: SPIRONOLACTONE
     Dosage: 25 MG, DAILY
     Route: 048
  12. ALBUTEROL SULFATE. [Concomitant]
     Active Substance: ALBUTEROL SULFATE
     Dosage: UNK, AS NEEDED (0.63 MG/3ML FOUR TIMES A DAY)
     Route: 045
  13. IPRATROPIUM BROMIDE. [Concomitant]
     Active Substance: IPRATROPIUM BROMIDE
     Dosage: UNK UNK, AS NEEDED (1 SOLUTION INHALATION FOUR TIMES A DAY)
  14. SOTALOL HCL [Concomitant]
     Active Substance: SOTALOL
     Dosage: 80 MG, 1X/DAY
     Dates: start: 2015
  15. TUMS [Concomitant]
     Active Substance: CALCIUM CARBONATE
     Dosage: 1 DF, 2X/DAY
     Route: 048
  16. WARFARIN SODIUM. [Concomitant]
     Active Substance: WARFARIN SODIUM
     Indication: ANTICOAGULANT THERAPY
     Dosage: 3 MG, 1X/DAY
  17. POTASSIUM CHLORIDE. [Concomitant]
     Active Substance: POTASSIUM CHLORIDE
     Dosage: 10 MEQ, DAILY
     Route: 048
     Dates: start: 20130603
  18. LACTULOSE. [Concomitant]
     Active Substance: LACTULOSE
     Dosage: UNK, 2X/DAY
     Route: 048
  19. SOTALOL HCL [Concomitant]
     Active Substance: SOTALOL
     Indication: ATRIAL FIBRILLATION
     Dosage: 80 MG, 2X/DAY
     Route: 048
  20. ACETAMINOPHEN W/HYDROCODONE [Concomitant]
     Active Substance: ACETAMINOPHEN\HYDROCODONE
     Dosage: 1 UNK, UNK

REACTIONS (4)
  - Arthritis [Unknown]
  - Bursitis [Unknown]
  - Neoplasm progression [Unknown]
  - Product use in unapproved indication [Unknown]

NARRATIVE: CASE EVENT DATE: 201605
